FAERS Safety Report 6054655-9 (Version None)
Quarter: 2009Q1

REPORT INFORMATION
  Report Type: 
  Country: None (occurrence: None)
  Receive Date: 20090128
  Receipt Date: 20090116
  Transmission Date: 20090719
  Serious: Yes (Death)
  Sender: FDA-Public Use
  Company Number: US-RANBAXY-2009RR-21059

PATIENT
  Age: 51 Year
  Sex: Female

DRUGS (5)
  1. TRAZODONE HCL [Suspect]
     Indication: COMPLETED SUICIDE
     Route: 048
  2. FLUOXETINE HCL [Suspect]
     Indication: COMPLETED SUICIDE
     Route: 048
  3. BUSPIRONE HCL [Suspect]
     Indication: COMPLETED SUICIDE
     Route: 048
  4. QUETIAPINE FUMARATE [Suspect]
     Indication: COMPLETED SUICIDE
     Route: 048
  5. ETHANOL [Suspect]
     Indication: COMPLETED SUICIDE
     Route: 048

REACTIONS (3)
  - CARDIAC ARREST [None]
  - COMPLETED SUICIDE [None]
  - RESPIRATORY ARREST [None]
